FAERS Safety Report 9460693 (Version 1)
Quarter: 2013Q3

REPORT INFORMATION
  Report Type: Spontaneous
  Country: DE (occurrence: None)
  Receive Date: 20130813
  Receipt Date: 20130813
  Transmission Date: 20140515
  Serious: Yes (Hospitalization)
  Sender: FDA-Public Use
  Company Number: SYM-2013-08516

PATIENT
  Age: 77 Year
  Sex: Female

DRUGS (1)
  1. NITOMAN [Suspect]
     Indication: PRODUCT USED FOR UNKNOWN INDICATION
     Dosage: 1 IN 1 D

REACTIONS (2)
  - Nausea [None]
  - General physical condition abnormal [None]
